FAERS Safety Report 5581950-X (Version None)
Quarter: 2008Q1

REPORT INFORMATION
  Report Type: 
  Country: None (occurrence: None)
  Receive Date: 20080104
  Receipt Date: 20071228
  Transmission Date: 20080703
  Serious: Yes (Life-Threatening, Hospitalization)
  Sender: FDA-Public Use
  Company Number: B0498628A

PATIENT
  Sex: Male
  Weight: 50 kg

DRUGS (6)
  1. VALTREX [Suspect]
     Indication: HERPES ZOSTER
     Dosage: 1000MG THREE TIMES PER DAY
     Route: 048
     Dates: start: 20071030, end: 20071105
  2. NIVADIL [Concomitant]
     Indication: HYPERTENSION
     Dosage: 8MG PER DAY
     Route: 048
  3. CEROCRAL [Concomitant]
     Indication: VERTEBROBASILAR INSUFFICIENCY
     Dosage: 60MG PER DAY
     Route: 048
  4. URINORM [Concomitant]
     Indication: HYPERURICAEMIA
     Dosage: 25MG PER DAY
     Route: 048
  5. BLOPRESS [Concomitant]
     Indication: HYPERTENSION
     Dosage: 4MG PER DAY
     Route: 048
     Dates: start: 20041222, end: 20050318
  6. BLOPRESS [Concomitant]
     Dosage: 8MG PER DAY
     Route: 048
     Dates: start: 20050318

REACTIONS (7)
  - ANOREXIA [None]
  - ANURIA [None]
  - DIZZINESS [None]
  - EATING DISORDER [None]
  - HAEMODIALYSIS [None]
  - RENAL FAILURE [None]
  - RENAL FAILURE ACUTE [None]
